FAERS Safety Report 13387573 (Version 1)
Quarter: 2017Q1

REPORT INFORMATION
  Report Type: Spontaneous
  Country: US (occurrence: US)
  Receive Date: 20170330
  Receipt Date: 20170330
  Transmission Date: 20170429
  Serious: No
  Sender: FDA-Public Use
  Company Number: US-009507513-1703USA010128

PATIENT
  Sex: Male

DRUGS (1)
  1. KEYTRUDA [Suspect]
     Active Substance: PEMBROLIZUMAB
     Indication: LUNG NEOPLASM MALIGNANT
     Dosage: 200 MG, EVERY THREE WEEKS
     Route: 042
     Dates: start: 201701

REACTIONS (2)
  - Rectal tenesmus [Unknown]
  - Product use issue [Unknown]

NARRATIVE: CASE EVENT DATE: 201701
